FAERS Safety Report 9088578 (Version 1)
Quarter: 2013Q1

REPORT INFORMATION
  Report Type: Spontaneous
  Country: US (occurrence: US)
  Receive Date: 20130131
  Receipt Date: 20130131
  Transmission Date: 20140127
  Serious: No
  Sender: FDA-Public Use
  Company Number: US-ABBOTT-12P-163-0991135-00

PATIENT
  Sex: Female
  Weight: 55.39 kg

DRUGS (2)
  1. HUMIRA [Suspect]
     Indication: PSORIATIC ARTHROPATHY
     Dates: start: 201102, end: 201105
  2. HUMIRA [Suspect]
     Dates: start: 201209

REACTIONS (3)
  - Incorrect drug administration duration [Unknown]
  - Wound [Recovered/Resolved]
  - Squamous cell carcinoma [Recovered/Resolved]
